FAERS Safety Report 5832368-3 (Version None)
Quarter: 2008Q3

REPORT INFORMATION
  Report Type: 
  Country: None (occurrence: None)
  Receive Date: 20080731
  Receipt Date: 20080731
  Transmission Date: 20090109
  Serious: No
  Sender: FDA-Public Use
  Company Number: None

PATIENT
  Age: 61 Year
  Sex: Female
  Weight: 69.4003 kg

DRUGS (1)
  1. ACTONEL [Suspect]
     Indication: OSTEOPOROSIS
     Dates: start: 20080725, end: 20080725

REACTIONS (4)
  - ABDOMINAL PAIN UPPER [None]
  - BLISTER [None]
  - DYSPEPSIA [None]
  - RASH [None]
